FAERS Safety Report 7424718-1 (Version None)
Quarter: 2011Q2

REPORT INFORMATION
  Report Type: 
  Country: None (occurrence: None)
  Receive Date: 20110419
  Receipt Date: 20110413
  Transmission Date: 20111010
  Serious: Yes (Hospitalization)
  Sender: FDA-Public Use
  Company Number: US-GILEAD-2011-0038414

PATIENT
  Sex: Female
  Weight: 70.9 kg

DRUGS (2)
  1. TRUVADA [Suspect]
     Indication: HIV INFECTION
     Dates: start: 20110131
  2. RALTEGRAVIR [Concomitant]
     Indication: HIV INFECTION
     Route: 048
     Dates: start: 20110131

REACTIONS (6)
  - DECREASED APPETITE [None]
  - VOMITING [None]
  - BLOOD PHOSPHORUS DECREASED [None]
  - WEIGHT DECREASED [None]
  - BLOOD CREATININE INCREASED [None]
  - FAILURE TO THRIVE [None]
